FAERS Safety Report 9356172 (Version 3)
Quarter: 2013Q3

REPORT INFORMATION
  Report Type: Spontaneous
  Country: JP (occurrence: JP)
  Receive Date: 20130619
  Receipt Date: 20130710
  Transmission Date: 20140515
  Serious: Yes (Other)
  Sender: FDA-Public Use
  Company Number: JP-PFIZER INC-2013182411

PATIENT
  Age: 82 Year
  Sex: Female

DRUGS (4)
  1. LIPITOR [Suspect]
     Indication: HYPERCHOLESTEROLAEMIA
     Dosage: 10 MG, 1X/DAY
     Route: 048
     Dates: start: 2007
  2. ARICEPT [Concomitant]
     Dosage: UNK
     Route: 048
  3. MEMARY [Concomitant]
     Dosage: UNK
  4. PLATIBIT [Concomitant]
     Dosage: UNK

REACTIONS (2)
  - Dementia [Unknown]
  - Intentional drug misuse [Unknown]
